FAERS Safety Report 21658213 (Version 1)
Quarter: 2022Q4

REPORT INFORMATION
  Report Type: Spontaneous
  Country: BR (occurrence: BR)
  Receive Date: 20221129
  Receipt Date: 20221129
  Transmission Date: 20230113
  Serious: Yes (Other)
  Sender: FDA-Public Use
  Company Number: BR-002147023-NVSC2022BR264691

PATIENT
  Age: 59 Year
  Sex: Female
  Weight: 63 kg

DRUGS (7)
  1. COSENTYX [Suspect]
     Active Substance: SECUKINUMAB
     Indication: Rheumatoid arthritis
     Dosage: 1 DOSAGE FORM, QMO (1 PEN)
     Route: 058
     Dates: start: 202203, end: 202208
  2. COSENTYX [Suspect]
     Active Substance: SECUKINUMAB
     Indication: Psoriasis
     Dosage: 1 DOSAGE FORM, QMO (1 PEN)
     Route: 058
     Dates: start: 20221118
  3. PU RUN [Concomitant]
     Indication: Thyroid disorder
     Dosage: 1 DOSAGE FORM, QD (1 TABLET)
     Route: 048
     Dates: start: 1994
  4. METHOTREXATE [Concomitant]
     Active Substance: METHOTREXATE
     Indication: Rheumatoid arthritis
     Dosage: 8 DOSAGE FORM, QW (START MANY YEARS AGO (SHE WAS UNABLE TO INFORM))
     Route: 048
  5. FOLIC ACID [Concomitant]
     Active Substance: FOLIC ACID
     Indication: Product used for unknown indication
     Dosage: 2 DOSAGE FORM, QW (START MANY YEARS AGO (SHE WAS UNABLE TO INFORM))
     Route: 048
  6. CALCIUM [Concomitant]
     Active Substance: CALCIUM
     Indication: Product used for unknown indication
     Dosage: 1 DOSAGE FORM, QD (START MANY YEARS AGO (SHE WAS UNABLE TO INFORM))
     Route: 048
  7. OMEPRAZOLE [Concomitant]
     Active Substance: OMEPRAZOLE
     Indication: Product used for unknown indication
     Dosage: 1 DOSAGE FORM, QD (START MANY YEARS AGO (SHE WAS UNABLE TO INFORM))
     Route: 048

REACTIONS (6)
  - Pain [Not Recovered/Not Resolved]
  - Intervertebral disc protrusion [Not Recovered/Not Resolved]
  - Hypersensitivity [Recovering/Resolving]
  - Wound [Recovering/Resolving]
  - Blood cholesterol increased [Recovering/Resolving]
  - Depression [Recovering/Resolving]

NARRATIVE: CASE EVENT DATE: 20220828
